FAERS Safety Report 23447133 (Version 1)
Quarter: 2024Q1

REPORT INFORMATION
  Report Type: Spontaneous
  Country: CN (occurrence: None)
  Receive Date: 20240126
  Receipt Date: 20240126
  Transmission Date: 20240409
  Serious: Yes (Hospitalization)
  Sender: FDA-Public Use
  Company Number: 2024A017271

PATIENT
  Age: 21075 Day
  Sex: Male
  Weight: 73 kg

DRUGS (2)
  1. DAPAGLIFLOZIN [Suspect]
     Active Substance: DAPAGLIFLOZIN
     Indication: Symptomatic treatment
     Route: 048
     Dates: start: 20231121, end: 20231214
  2. DAPAGLIFLOZIN [Suspect]
     Active Substance: DAPAGLIFLOZIN
     Indication: Hypoglycaemia
     Route: 048
     Dates: start: 20231121, end: 20231214

REACTIONS (3)
  - Pruritus [Recovering/Resolving]
  - Papule [Unknown]
  - Rash erythematous [Recovering/Resolving]

NARRATIVE: CASE EVENT DATE: 20231204
